FAERS Safety Report 4881377-X (Version None)
Quarter: 2006Q1

REPORT INFORMATION
  Report Type: 
  Country: None (occurrence: None)
  Receive Date: 20060111
  Receipt Date: 20060111
  Transmission Date: 20060701
  Serious: No
  Sender: FDA-Public Use
  Company Number: None

PATIENT
  Age: 63 Year
  Sex: Male

DRUGS (1)
  1. ETHAMBUTOL 400 MGM [Suspect]
     Indication: TUBERCULOSIS
     Dosage: 1200 MGM PO
     Route: 048
     Dates: start: 20051222

REACTIONS (3)
  - ERYTHEMA [None]
  - HYPOAESTHESIA [None]
  - TONGUE COATED [None]
